FAERS Safety Report 4654355-3 (Version None)
Quarter: 2005Q2

REPORT INFORMATION
  Report Type: 
  Country: None (occurrence: None)
  Receive Date: 20050404
  Receipt Date: 20041227
  Transmission Date: 20051028
  Serious: No
  Sender: FDA-Public Use
  Company Number: USA041286962

PATIENT
  Age: 17 Year
  Sex: Female

DRUGS (10)
  1. CYMBALTA [Suspect]
     Indication: FIBROMYALGIA
     Dosage: 60 MG DAY
     Dates: start: 20041001
  2. OXYCONTIN [Concomitant]
  3. PREVACID [Concomitant]
  4. ADDERALL 10 [Concomitant]
  5. NALTREXONE [Concomitant]
  6. BACLOFEN [Concomitant]
  7. NORFLEX [Concomitant]
  8. ORAL CONTRACEPTIVE NOS [Concomitant]
  9. ANAPROX [Concomitant]
  10. OXYCODONE [Concomitant]

REACTIONS (2)
  - DEPRESSION [None]
  - FEELING ABNORMAL [None]
